FAERS Safety Report 4383383-0 (Version None)
Quarter: 2004Q2

REPORT INFORMATION
  Report Type: 
  Country: None (occurrence: None)
  Receive Date: 20040618
  Receipt Date: 20040607
  Transmission Date: 20050107
  Serious: Yes (Hospitalization, Other)
  Sender: FDA-Public Use
  Company Number: 031-0981-990081

PATIENT
  Age: 64 Year
  Sex: Male
  Weight: 97 kg

DRUGS (4)
  1. ATORVASTATIN (ATORVASTATIN) [Suspect]
     Indication: HYPERLIPIDAEMIA
     Dosage: 10 MG (DAILY), ORAL
     Route: 048
     Dates: start: 19990602
  2. METOPROLOL (METOPROLOL) [Concomitant]
  3. ACETYLSALICYLIC ACID SRT [Concomitant]
  4. SIMVASTATIN [Concomitant]

REACTIONS (10)
  - ATELECTASIS [None]
  - BODY TEMPERATURE INCREASED [None]
  - HEPATIC CYST [None]
  - HICCUPS [None]
  - HYPERHIDROSIS [None]
  - LUNG INFILTRATION [None]
  - LYMPHOMA [None]
  - METASTASES TO LYMPH NODES [None]
  - OESOPHAGEAL CARCINOMA [None]
  - WEIGHT DECREASED [None]
